FAERS Safety Report 24108161 (Version 1)
Quarter: 2024Q3

REPORT INFORMATION
  Report Type: Report from Study
  Country: US (occurrence: None)
  Receive Date: 20240718
  Receipt Date: 20240718
  Transmission Date: 20241017
  Serious: Yes (Hospitalization)
  Sender: ASTRAZENECA
  Company Number: 2020SE40181

PATIENT
  Age: 30531 Day
  Sex: Male

DRUGS (13)
  1. CALQUENCE [Suspect]
     Active Substance: ACALABRUTINIB
     Indication: Chronic lymphocytic leukaemia
     Route: 048
  2. SOTALOL [Concomitant]
     Active Substance: SOTALOL
  3. PANTOPRAZOLE [Concomitant]
     Active Substance: PANTOPRAZOLE
  4. ONDANSETRON [Concomitant]
     Active Substance: ONDANSETRON
  5. MAGNESIUM [Concomitant]
     Active Substance: MAGNESIUM
  6. LIPITOR [Concomitant]
     Active Substance: ATORVASTATIN CALCIUM
  7. LIDOCAINE [Concomitant]
     Active Substance: LIDOCAINE
  8. FOLIC ACID [Concomitant]
     Active Substance: FOLIC ACID
  9. FINASTERIDE [Concomitant]
     Active Substance: FINASTERIDE
  10. IRON [Concomitant]
     Active Substance: IRON
  11. DEXAMETHASONE [Concomitant]
     Active Substance: DEXAMETHASONE
  12. CEPHALEXIN [Concomitant]
     Active Substance: CEPHALEXIN
  13. AMOXICILLIN [Concomitant]
     Active Substance: AMOXICILLIN

REACTIONS (3)
  - Internal haemorrhage [Recovering/Resolving]
  - Hypophagia [Recovering/Resolving]
  - Haemothorax [Not Recovered/Not Resolved]

NARRATIVE: CASE EVENT DATE: 20200309
